FAERS Safety Report 7793098-4 (Version None)
Quarter: 2011Q4

REPORT INFORMATION
  Report Type: 
  Country: None (occurrence: None)
  Receive Date: 20111003
  Receipt Date: 20110921
  Transmission Date: 20120403
  Serious: Yes (Other)
  Sender: FDA-Public Use
  Company Number: US-BAYER-2011-014899

PATIENT
  Age: 23 Year
  Sex: Female
  Weight: 55.329 kg

DRUGS (6)
  1. YASMIN [Suspect]
     Indication: CONTRACEPTION
  2. DROSPIRENONE AND ETHINYL ESTRADIOL [Suspect]
     Indication: MENSTRUAL CYCLE MANAGEMENT
     Dosage: UNK
     Dates: start: 20041201, end: 20100501
  3. YASMIN [Suspect]
     Indication: MENSTRUAL CYCLE MANAGEMENT
     Dosage: UNK
     Dates: start: 20041201, end: 20100501
  4. TOPAMAX [Concomitant]
  5. NSAID'S [Concomitant]
  6. TRAMADOL HCL [Concomitant]

REACTIONS (5)
  - BILIARY DYSKINESIA [None]
  - PAIN [None]
  - INJURY [None]
  - CHOLECYSTITIS CHRONIC [None]
  - CHOLECYSTECTOMY [None]
